FAERS Safety Report 8580828-7 (Version None)
Quarter: 2012Q3

REPORT INFORMATION
  Report Type: 
  Country: None (occurrence: None)
  Receive Date: 20120809
  Receipt Date: 20120727
  Transmission Date: 20120928
  Serious: Yes (Other)
  Sender: FDA-Public Use
  Company Number: GB-RANBAXY-2012RR-58703

PATIENT
  Sex: Female

DRUGS (1)
  1. DONEPEZIL HCL [Suspect]
     Indication: PRODUCT USED FOR UNKNOWN INDICATION
     Dosage: 10 MG, UNK
     Route: 065
     Dates: start: 20120101

REACTIONS (2)
  - DRUG INEFFECTIVE [None]
  - CONFUSIONAL STATE [None]
